FAERS Safety Report 25627338 (Version 2)
Quarter: 2025Q3

REPORT INFORMATION
  Report Type: Spontaneous
  Country: EU (occurrence: EU)
  Receive Date: 20250731
  Receipt Date: 20250816
  Transmission Date: 20251020
  Serious: Yes (Hospitalization, Other)
  Sender: AUROBINDO
  Company Number: EU-ARENA-2025-00121

PATIENT
  Age: 57 Year
  Sex: Female

DRUGS (2)
  1. CEFUROXIME [Suspect]
     Active Substance: CEFUROXIME
     Indication: Cellulitis
     Route: 065
  2. METRONIDAZOLE [Concomitant]
     Active Substance: METRONIDAZOLE
     Indication: Cellulitis
     Route: 065

REACTIONS (3)
  - Necrotising fasciitis [Recovered/Resolved]
  - Infection [Recovered/Resolved]
  - Condition aggravated [Recovered/Resolved]
